FAERS Safety Report 8378889-3 (Version None)
Quarter: 2012Q2

REPORT INFORMATION
  Report Type: 
  Country: None (occurrence: None)
  Receive Date: 20120522
  Receipt Date: 20120522
  Transmission Date: 20120825
  Serious: Yes (Life-Threatening, Hospitalization, Disabling)
  Sender: FDA-Public Use
  Company Number: None

PATIENT
  Age: 32 Year
  Sex: Female
  Weight: 63.5036 kg

DRUGS (2)
  1. YAZ [Suspect]
     Indication: ACNE
     Dosage: ONE PILL ONCE A DAY PO MORE THAN A YEAR
     Route: 048
  2. YAZ [Suspect]
     Indication: MENSTRUATION IRREGULAR
     Dosage: ONE PILL ONCE A DAY PO MORE THAN A YEAR
     Route: 048

REACTIONS (7)
  - GALLBLADDER DISORDER [None]
  - ABDOMINAL PAIN [None]
  - ABDOMINAL DISCOMFORT [None]
  - GASTROINTESTINAL DISORDER [None]
  - VOMITING [None]
  - LIVER DISORDER [None]
  - APHAGIA [None]
